FAERS Safety Report 8366721-3 (Version None)
Quarter: 2012Q2

REPORT INFORMATION
  Report Type: 
  Country: None (occurrence: None)
  Receive Date: 20120517
  Receipt Date: 20120514
  Transmission Date: 20120825
  Serious: Yes (Death, Life-Threatening, Other)
  Sender: FDA-Public Use
  Company Number: GB-PFIZER INC-2012116312

PATIENT
  Age: 70 Year
  Sex: Female
  Weight: 80 kg

DRUGS (8)
  1. PIPERACILLIN AND TAZOBACTAM [Suspect]
     Indication: INFECTION
     Route: 042
     Dates: start: 20120405
  2. GENTAMICIN [Concomitant]
     Indication: INFECTION
     Dates: end: 20120329
  3. RIFAMPICIN [Concomitant]
     Indication: INFECTION
  4. CIPROFLOXACIN [Concomitant]
     Indication: INFECTION
  5. CIPROFLOXACIN HCL [Interacting]
     Indication: INFECTION
     Route: 048
     Dates: start: 20110329, end: 20120405
  6. ALLOPURINOL [Concomitant]
  7. METHOTREXATE SODIUM [Interacting]
     Indication: PSORIATIC ARTHROPATHY
     Dosage: 20 MG, WEEKLY
     Route: 048
     Dates: end: 20120407
  8. TEICOPLANIN [Concomitant]
     Indication: INFECTION
     Dates: end: 20120329

REACTIONS (18)
  - C-REACTIVE PROTEIN INCREASED [None]
  - PLATELET COUNT DECREASED [None]
  - MUCOSAL ULCERATION [None]
  - WHITE BLOOD CELL COUNT DECREASED [None]
  - HAEMOGLOBIN DECREASED [None]
  - STEVENS-JOHNSON SYNDROME [None]
  - PYREXIA [None]
  - TACHYCARDIA [None]
  - POTENTIATING DRUG INTERACTION [None]
  - RENAL FAILURE ACUTE [None]
  - INFLAMMATION [None]
  - MUCOSAL INFLAMMATION [None]
  - PAIN [None]
  - SEPSIS [None]
  - BLISTER [None]
  - PANCYTOPENIA [None]
  - RASH ERYTHEMATOUS [None]
  - LIVER FUNCTION TEST ABNORMAL [None]
